FAERS Safety Report 12507747 (Version 1)
Quarter: 2016Q2

REPORT INFORMATION
  Report Type: Spontaneous
  Country: US (occurrence: US)
  Receive Date: 20160629
  Receipt Date: 20160629
  Transmission Date: 20160815
  Serious: No
  Sender: FDA-Public Use
  Company Number: US-PFIZER INC-2016291483

PATIENT
  Age: 45 Year
  Sex: Female

DRUGS (7)
  1. MORPHINE SULFATE. [Concomitant]
     Active Substance: MORPHINE SULFATE
  2. LORTAB [Concomitant]
     Active Substance: ACETAMINOPHEN\HYDROCODONE BITARTRATE
  3. ASPIRIN CAFFEINE [Concomitant]
     Active Substance: ASPIRIN\CAFFEINE
  4. MULTIVITAMIN [Concomitant]
     Active Substance: VITAMINS
  5. OXYCODONE HYDROCHLORIDE. [Concomitant]
     Active Substance: OXYCODONE HYDROCHLORIDE
  6. IBRANCE [Suspect]
     Active Substance: PALBOCICLIB
     Indication: METASTASES TO BONE
     Dosage: 125 MG, CYCLIC (TAKE 1 CAPSULE (125 MG) BY MOUTH DAILY FOR 21 DAYS ON, THEN 7 DAYS OFF)
     Route: 048
  7. LETROZOLE. [Concomitant]
     Active Substance: LETROZOLE

REACTIONS (4)
  - Constipation [Unknown]
  - Product use issue [Unknown]
  - Pain [Unknown]
  - Vomiting [Unknown]
